FAERS Safety Report 20053142 (Version 3)
Quarter: 2022Q1

REPORT INFORMATION
  Report Type: Report from Study
  Country: FR (occurrence: FR)
  Receive Date: 20211110
  Receipt Date: 20220117
  Transmission Date: 20220423
  Serious: Yes (Death, Hospitalization)
  Sender: FDA-Public Use
  Company Number: FR-NOVARTISPH-NVSC2021FR256640

PATIENT
  Age: 76 Year
  Sex: Male
  Weight: 170 kg

DRUGS (5)
  1. DABRAFENIB [Suspect]
     Active Substance: DABRAFENIB
     Indication: Metastatic malignant melanoma
     Dosage: 300 MG
     Route: 048
     Dates: start: 20210713, end: 20210720
  2. DABRAFENIB [Suspect]
     Active Substance: DABRAFENIB
     Dosage: 150 MG
     Route: 048
     Dates: start: 20210724, end: 20210916
  3. DABRAFENIB [Suspect]
     Active Substance: DABRAFENIB
     Dosage: 225 MG
     Route: 048
     Dates: start: 20210916, end: 20210922
  4. TRAMETINIB [Suspect]
     Active Substance: TRAMETINIB
     Indication: Metastatic malignant melanoma
     Dosage: 2 MG
     Route: 048
     Dates: start: 20210713, end: 20210720
  5. TRAMETINIB [Suspect]
     Active Substance: TRAMETINIB
     Dosage: 2 MG
     Route: 048
     Dates: start: 20210724, end: 20210922

REACTIONS (9)
  - Fournier^s gangrene [Fatal]
  - General physical health deterioration [Unknown]
  - Groin pain [Unknown]
  - Scrotal pain [Unknown]
  - Pyrexia [Unknown]
  - Anaemia [Unknown]
  - Malaise [Unknown]
  - Melaena [Unknown]
  - Duodenal ulcer [Recovering/Resolving]

NARRATIVE: CASE EVENT DATE: 20210922
